FAERS Safety Report 15471609 (Version 2)
Quarter: 2018Q4

REPORT INFORMATION
  Report Type: Spontaneous
  Country: US (occurrence: US)
  Receive Date: 20181007
  Receipt Date: 20181112
  Transmission Date: 20190205
  Serious: No
  Sender: FDA-Public Use
  Company Number: US-ASTRAZENECA-2016SF27696

PATIENT
  Sex: Male
  Weight: 82.6 kg

DRUGS (1)
  1. TUDORZA PRESSAIR [Suspect]
     Active Substance: ACLIDINIUM BROMIDE
     Indication: DYSPNOEA
     Dosage: 400MCG, 1 PUFF TWICE DAILY
     Route: 055
     Dates: start: 201512

REACTIONS (3)
  - Chronic obstructive pulmonary disease [Unknown]
  - Seasonal allergy [Unknown]
  - Device failure [Unknown]
